FAERS Safety Report 9993538 (Version 1)
Quarter: 2014Q1

REPORT INFORMATION
  Report Type: Spontaneous
  Country: US (occurrence: US)
  Receive Date: 20140310
  Receipt Date: 20140310
  Transmission Date: 20141002
  Serious: Yes (Other)
  Sender: FDA-Public Use
  Company Number: CHPA2014US003577

PATIENT
  Age: 78 Year
  Sex: Male

DRUGS (3)
  1. THERAPEUTIC MINERAL ICE [Suspect]
     Indication: PAIN
     Dosage: UNK
     Route: 065
     Dates: start: 1994
  2. THERAPEUTIC MINERAL ICE [Suspect]
     Indication: OFF LABEL USE
  3. MYOFLEX [Concomitant]
     Route: 065

REACTIONS (5)
  - Glaucoma [Not Recovered/Not Resolved]
  - Bursitis [Not Recovered/Not Resolved]
  - Arthritis [Not Recovered/Not Resolved]
  - Drug ineffective [Unknown]
  - Expired drug administered [Unknown]
